FAERS Safety Report 19906148 (Version 1)
Quarter: 2021Q4

REPORT INFORMATION
  Report Type: Spontaneous
  Country: DE (occurrence: DE)
  Receive Date: 20211001
  Receipt Date: 20211001
  Transmission Date: 20220303
  Serious: Yes (Hospitalization)
  Sender: FDA-Public Use
  Company Number: DE-ADRED-06443-01

PATIENT
  Age: 79 Year
  Sex: Female

DRUGS (8)
  1. DONEPEZIL [Suspect]
     Active Substance: DONEPEZIL
     Indication: Product used for unknown indication
     Dosage: 10 MG, 0-0-1-0, TABLETTEN
     Route: 048
  2. VENLAFAXINE HYDROCHLORIDE [Suspect]
     Active Substance: VENLAFAXINE HYDROCHLORIDE
     Indication: Product used for unknown indication
     Dosage: 75 MG, 1-0-0-0, TABLETTEN
     Route: 048
  3. ASPIRIN [Suspect]
     Active Substance: ASPIRIN
     Indication: Product used for unknown indication
     Dosage: 100 MG, 0-0-1-0, TABLETTEN
     Route: 048
  4. AMLODIPINE BESYLATE [Concomitant]
     Active Substance: AMLODIPINE BESYLATE
     Dosage: 5 MG, 1-0-0-0, TABLETTEN
     Route: 048
  5. ACLIDINIUM BROMIDE\FORMOTEROL FUMARATE [Concomitant]
     Active Substance: ACLIDINIUM BROMIDE\FORMOTEROL FUMARATE
     Dosage: 40|12 ?G, 1-0-1-0, INHALATIONSPULVER
     Route: 055
  6. LOSARTAN POTASSIUM [Concomitant]
     Active Substance: LOSARTAN POTASSIUM
     Dosage: 100 MG, 1-0-0-0, TABLETTEN
     Route: 048
  7. BUDESONIDE\FORMOTEROL [Concomitant]
     Active Substance: BUDESONIDE\FORMOTEROL
     Dosage: 200|6 ?G, 1-0-1-0, INHALATIONSPULVER
     Route: 055
  8. TORSEMIDE [Concomitant]
     Active Substance: TORSEMIDE
     Dosage: 2.5 MG, 1-0-0-0, TABLETTEN
     Route: 048

REACTIONS (6)
  - Haematochezia [Unknown]
  - Constipation [Unknown]
  - Abdominal pain lower [Unknown]
  - Nausea [Unknown]
  - Diarrhoea [Unknown]
  - Flatulence [Unknown]
